FAERS Safety Report 7303736-8 (Version None)
Quarter: 2011Q1

REPORT INFORMATION
  Report Type: 
  Country: None (occurrence: None)
  Receive Date: 20110221
  Receipt Date: 20110211
  Transmission Date: 20110831
  Serious: Yes (Hospitalization)
  Sender: FDA-Public Use
  Company Number: US-ASTRAZENECA-2011SE02289

PATIENT
  Age: 12 Year
  Sex: Female
  Weight: 70.3 kg

DRUGS (8)
  1. SEROQUEL [Suspect]
     Indication: ATTENTION DEFICIT/HYPERACTIVITY DISORDER
     Route: 048
     Dates: start: 20040101, end: 20100101
  2. SEROQUEL [Suspect]
     Indication: BIPOLAR DISORDER
     Route: 048
     Dates: start: 20040101, end: 20100101
  3. SEROQUEL [Suspect]
     Indication: HALLUCINATIONS, MIXED
     Route: 048
     Dates: start: 20040101, end: 20100101
  4. TENEX [Concomitant]
     Indication: MOOD ALTERED
  5. BENADRYL [Concomitant]
     Dosage: AT NIGHT
  6. SEROQUEL [Suspect]
     Route: 048
     Dates: start: 20100101, end: 20110209
  7. SEROQUEL [Suspect]
     Route: 048
     Dates: start: 20100101, end: 20110209
  8. SEROQUEL [Suspect]
     Route: 048
     Dates: start: 20100101, end: 20110209

REACTIONS (12)
  - MOOD ALTERED [None]
  - ABNORMAL BEHAVIOUR [None]
  - SCREAMING [None]
  - HALLUCINATIONS, MIXED [None]
  - HEART RATE INCREASED [None]
  - PHOTOPHOBIA [None]
  - THINKING ABNORMAL [None]
  - MIGRAINE [None]
  - AGGRESSION [None]
  - INSOMNIA [None]
  - PAIN [None]
  - DRUG DOSE OMISSION [None]
